FAERS Safety Report 4768191-0 (Version None)
Quarter: 2005Q3

REPORT INFORMATION
  Report Type: 
  Country: None (occurrence: None)
  Receive Date: 20050912
  Receipt Date: 20050912
  Transmission Date: 20060218
  Serious: Yes (Other)
  Sender: FDA-Public Use
  Company Number: None

PATIENT
  Age: 53 Year
  Sex: Female
  Weight: 63.5036 kg

DRUGS (11)
  1. LITHIUM CARBONATE [Suspect]
     Indication: MAJOR DEPRESSION
     Dosage: 900 MG PO
     Route: 048
     Dates: start: 20050812, end: 20050824
  2. KLONOPIN [Concomitant]
  3. LORTAB [Concomitant]
  4. ZANTAC [Concomitant]
  5. SPIRONOLACTONE [Concomitant]
  6. SYNTHROID [Concomitant]
  7. WELLBUTRIN [Concomitant]
  8. ADDERALL 10 [Concomitant]
  9. CYMBALTA [Concomitant]
  10. TOPAMAX [Concomitant]
  11. LOESTRIN 1.5/30 [Concomitant]

REACTIONS (4)
  - COORDINATION ABNORMAL [None]
  - IMPAIRED DRIVING ABILITY [None]
  - MADAROSIS [None]
  - VISUAL DISTURBANCE [None]
